FAERS Safety Report 10460158 (Version 1)
Quarter: 2014Q3

REPORT INFORMATION
  Report Type: Spontaneous
  Country: BR (occurrence: BR)
  Receive Date: 20140917
  Receipt Date: 20140917
  Transmission Date: 20150326
  Serious: Yes (Other)
  Sender: FDA-Public Use
  Company Number: BR-PFIZER INC-2014254341

PATIENT
  Age: 63 Year
  Sex: Female

DRUGS (2)
  1. ALPHAGAN P [Concomitant]
     Active Substance: BRIMONIDINE TARTRATE
  2. XALATAN [Suspect]
     Active Substance: LATANOPROST
     Indication: GLAUCOMA
     Dosage: UNK
     Dates: start: 2011

REACTIONS (3)
  - Incorrect product storage [Unknown]
  - Eye haemorrhage [Unknown]
  - Drug ineffective [Unknown]

NARRATIVE: CASE EVENT DATE: 2014
